FAERS Safety Report 4359191-3 (Version None)
Quarter: 2004Q2

REPORT INFORMATION
  Report Type: 
  Country: None (occurrence: None)
  Receive Date: 20040512
  Receipt Date: 20040503
  Transmission Date: 20050107
  Serious: No
  Sender: FDA-Public Use
  Company Number: 2004204277AU

PATIENT
  Sex: Female

DRUGS (2)
  1. GENOTROPIN [Suspect]
     Indication: TURNER'S SYNDROME
     Dosage: 12 MG, WEEKLY, SUBCUTANEOUS
     Route: 058
  2. THYROXIN (LEVOTHYROXINE SODIUM) [Concomitant]

REACTIONS (2)
  - SCOLIOSIS [None]
  - UPPER LIMB FRACTURE [None]
